FAERS Safety Report 5522612-4 (Version None)
Quarter: 2007Q4

REPORT INFORMATION
  Report Type: 
  Country: None (occurrence: None)
  Receive Date: 20071120
  Receipt Date: 20071114
  Transmission Date: 20080405
  Serious: Yes (Other)
  Sender: FDA-Public Use
  Company Number: US-PFIZER INC-2007095892

PATIENT
  Sex: Female

DRUGS (1)
  1. DEPO-PROVERA SUSPENSION/INJ [Suspect]
     Indication: CONTRACEPTION
     Dosage: FREQ:SHE TOOK 2-3 SHOTS BETWEEN 2002 AND 2003
     Dates: start: 20020101, end: 20030101

REACTIONS (5)
  - AMENORRHOEA [None]
  - HIRSUTISM [None]
  - HOT FLUSH [None]
  - INFERTILITY FEMALE [None]
  - WEIGHT INCREASED [None]
